FAERS Safety Report 24972337 (Version 1)
Quarter: 2025Q1

REPORT INFORMATION
  Report Type: Report from Study
  Country: US (occurrence: None)
  Receive Date: 20250215
  Receipt Date: 20250215
  Transmission Date: 20250409
  Serious: Yes (Hospitalization, Other)
  Sender: ALEXION PHARMACEUTICALS
  Company Number: US-AstraZeneca-2014SE23431

PATIENT
  Age: 66 Year
  Weight: 83.915 kg

DRUGS (21)
  1. NEXIUM [Suspect]
     Active Substance: ESOMEPRAZOLE MAGNESIUM
     Indication: Gastrooesophageal reflux disease
     Dosage: 40 MILLIGRAM, QD
  2. NEXIUM [Suspect]
     Active Substance: ESOMEPRAZOLE MAGNESIUM
  3. NEXIUM [Suspect]
     Active Substance: ESOMEPRAZOLE MAGNESIUM
     Dosage: 40 MILLIGRAM, QD
  4. NEXIUM [Suspect]
     Active Substance: ESOMEPRAZOLE MAGNESIUM
     Dosage: 40 MILLIGRAM, QD
  5. NEXIUM [Suspect]
     Active Substance: ESOMEPRAZOLE MAGNESIUM
     Dosage: 40 MILLIGRAM, BID
  6. NEXIUM [Suspect]
     Active Substance: ESOMEPRAZOLE MAGNESIUM
     Dosage: 40 MILLIGRAM, QD
  7. NEXIUM [Suspect]
     Active Substance: ESOMEPRAZOLE MAGNESIUM
     Dosage: 40 MILLIGRAM, BID
  8. NEXIUM [Suspect]
     Active Substance: ESOMEPRAZOLE MAGNESIUM
     Dosage: 2 DOSAGE FORM, QD
  9. NEXIUM [Suspect]
     Active Substance: ESOMEPRAZOLE MAGNESIUM
     Dosage: 40 MILLIGRAM, BID
  10. NEXIUM [Suspect]
     Active Substance: ESOMEPRAZOLE MAGNESIUM
  11. NEXIUM [Suspect]
     Active Substance: ESOMEPRAZOLE MAGNESIUM
  12. NEXIUM [Suspect]
     Active Substance: ESOMEPRAZOLE MAGNESIUM
  13. NEXIUM [Suspect]
     Active Substance: ESOMEPRAZOLE MAGNESIUM
     Dosage: 40 MILLIGRAM, QD
  14. NEXIUM [Suspect]
     Active Substance: ESOMEPRAZOLE MAGNESIUM
     Dosage: 40 MILLIGRAM, QD
  15. NEXIUM [Suspect]
     Active Substance: ESOMEPRAZOLE MAGNESIUM
  16. NEXIUM [Suspect]
     Active Substance: ESOMEPRAZOLE MAGNESIUM
  17. OMEPRAZOLE [Suspect]
     Active Substance: OMEPRAZOLE
  18. OMEPRAZOLE [Suspect]
     Active Substance: OMEPRAZOLE
     Dosage: 40 MILLIGRAM, QD
  19. SIMVASTATIN [Concomitant]
     Active Substance: SIMVASTATIN
     Indication: Blood cholesterol increased
     Dosage: 20 MILLIGRAM, QD
  20. LEVOTHYROXINE [Concomitant]
     Active Substance: LEVOTHYROXINE
     Indication: Hypothyroidism
     Dosage: .025 MILLIGRAM, QD
  21. VITAMIN B12 [Concomitant]
     Active Substance: CYANOCOBALAMIN
     Indication: Vitamin supplementation

REACTIONS (55)
  - Enthesopathy [Unknown]
  - Synovial rupture [Unknown]
  - Nodal osteoarthritis [Unknown]
  - Bladder outlet obstruction [Unknown]
  - Rotator cuff syndrome [Unknown]
  - Lumbar spinal stenosis [Unknown]
  - Renal cyst [Unknown]
  - Aortic aneurysm [Unknown]
  - Spinal osteoarthritis [Unknown]
  - Gastric polyps [Unknown]
  - Inguinal hernia [Unknown]
  - Glaucoma [Unknown]
  - Cataract [Unknown]
  - Cholelithiasis [Unknown]
  - Tinnitus [Unknown]
  - Body height decreased [Unknown]
  - Irritable bowel syndrome [Unknown]
  - Gastric mucosal lesion [Unknown]
  - Diverticulum intestinal [Unknown]
  - Haemorrhoids [Unknown]
  - Rhinitis [Unknown]
  - Abdominal pain upper [Unknown]
  - Chest pain [Unknown]
  - Sciatica [Unknown]
  - Actinic keratosis [Unknown]
  - Laryngitis [Unknown]
  - Diastasis recti abdominis [Unknown]
  - Eyelid irritation [Unknown]
  - Arrhythmia [Unknown]
  - Bronchitis [Unknown]
  - Hypothyroidism [Unknown]
  - Small fibre neuropathy [Unknown]
  - Osteopenia [Unknown]
  - Aortic arteriosclerosis [Unknown]
  - Spondylolisthesis [Unknown]
  - Facet joint syndrome [Unknown]
  - Vertebral foraminal stenosis [Unknown]
  - Sinus bradycardia [Unknown]
  - Sinus tachycardia [Unknown]
  - Oesophageal disorder [Unknown]
  - Oesophageal mucosa erythema [Unknown]
  - Chronic sinusitis [Unknown]
  - Sleep apnoea syndrome [Unknown]
  - Snoring [Unknown]
  - Electrocardiogram Q wave abnormal [Unknown]
  - Epigastric discomfort [Unknown]
  - Radiculopathy [Unknown]
  - Hepatic steatosis [Unknown]
  - Patellofemoral pain syndrome [Unknown]
  - Intervertebral disc protrusion [Unknown]
  - Anxiety [Unknown]
  - Hiatus hernia [Unknown]
  - Hypercholesterolaemia [Unknown]
  - Intentional product misuse [Unknown]
  - Drug ineffective [Unknown]
